FAERS Safety Report 10098786 (Version 1)
Quarter: 2014Q2

REPORT INFORMATION
  Report Type: Spontaneous
  Country: US (occurrence: None)
  Receive Date: 20140422
  Receipt Date: 20140422
  Transmission Date: 20141212
  Serious: No
  Sender: FDA-Public Use
  Company Number: None

PATIENT
  Age: 52 Year
  Sex: Female
  Weight: 98.43 kg

DRUGS (3)
  1. VALTREX [Suspect]
     Indication: ORAL HERPES
     Route: 048
     Dates: start: 2002, end: 2013
  2. DIOVAN [Concomitant]
  3. WOMEN^S MULTI VITAMIN [Concomitant]

REACTIONS (1)
  - Diabetes mellitus [None]
